FAERS Safety Report 5206579-4 (Version None)
Quarter: 2007Q1

REPORT INFORMATION
  Report Type: 
  Country: None (occurrence: None)
  Receive Date: 20070111
  Receipt Date: 20070104
  Transmission Date: 20070707
  Serious: Yes (Hospitalization)
  Sender: FDA-Public Use
  Company Number: US-MERCK-0701USA00629

PATIENT
  Age: 79 Year
  Sex: Male

DRUGS (6)
  1. FOSAMAX [Suspect]
     Indication: OSTEOPOROSIS
     Route: 048
     Dates: start: 20061120, end: 20070104
  2. BENICAR [Concomitant]
     Route: 065
  3. CHROMAGEN FORTE [Concomitant]
     Route: 065
  4. LEXAPRO [Concomitant]
     Route: 065
  5. UROXATRAL [Concomitant]
     Route: 065
  6. VITAMINS (UNSPECIFIED) [Concomitant]
     Route: 065

REACTIONS (2)
  - BLOOD POTASSIUM INCREASED [None]
  - URINARY RETENTION [None]
